FAERS Safety Report 6862498-9 (Version None)
Quarter: 2010Q3

REPORT INFORMATION
  Report Type: 
  Country: None (occurrence: None)
  Receive Date: 20100716
  Receipt Date: 20100624
  Transmission Date: 20110219
  Serious: Yes (Other)
  Sender: FDA-Public Use
  Company Number: 2010BI022747

PATIENT
  Sex: Female

DRUGS (10)
  1. ZEVALIN [Suspect]
     Indication: NON-HODGKIN'S LYMPHOMA
     Dosage: 0.4 MCI/KG; 1X; IV
     Route: 042
  2. RITUXIMAB [Concomitant]
  3. BUSULFAN [Concomitant]
  4. CYCLOPHOSPHAMIDE [Concomitant]
  5. ETOPOSIDE [Concomitant]
  6. GROWTH FACTOR [Concomitant]
  7. PHENYTOIN [Concomitant]
  8. MESNA [Concomitant]
  9. ANTIMETICS [Concomitant]
  10. ANTIBIOTICS [Concomitant]

REACTIONS (1)
  - THROMBOCYTOPENIA [None]
